FAERS Safety Report 4849528-0 (Version None)
Quarter: 2005Q4

REPORT INFORMATION
  Report Type: 
  Country: None (occurrence: None)
  Receive Date: 20051207
  Receipt Date: 20051122
  Transmission Date: 20060501
  Serious: Yes (Other)
  Sender: FDA-Public Use
  Company Number: 2005-0008905

PATIENT
  Age: 29 Year
  Sex: Male

DRUGS (6)
  1. VIREAD [Suspect]
     Indication: HIV INFECTION
     Dosage: 300 MG, 1 IN 1 D, ORAL
     Route: 048
     Dates: start: 20040706, end: 20040722
  2. NORVIR [Suspect]
     Indication: HIV INFECTION
     Dosage: 100 MG, 1 IN 1 D, ORAL
     Route: 048
     Dates: start: 20040706, end: 20040722
  3. REYATAZ [Suspect]
     Indication: HIV INFECTION
     Dates: start: 20040706, end: 20040722
  4. LAMIVUDINE [Suspect]
     Indication: HIV INFECTION
     Dosage: 150 MG, 2 IN 1 D
     Dates: start: 20031127, end: 20031224
  5. BACTRIM [Concomitant]
  6. NEORAL [Concomitant]

REACTIONS (5)
  - ALANINE AMINOTRANSFERASE INCREASED [None]
  - ASPARTATE AMINOTRANSFERASE INCREASED [None]
  - BLOOD BILIRUBIN INCREASED [None]
  - HEPATIC FUNCTION ABNORMAL [None]
  - JAUNDICE [None]
